FAERS Safety Report 4742867-3 (Version None)
Quarter: 2005Q3

REPORT INFORMATION
  Report Type: 
  Country: None (occurrence: None)
  Receive Date: 20050811
  Receipt Date: 20050805
  Transmission Date: 20060218
  Serious: Yes (Hospitalization)
  Sender: FDA-Public Use
  Company Number: 2005PK01477

PATIENT
  Age: 70 Year
  Sex: Female

DRUGS (6)
  1. SEROQUEL [Suspect]
     Route: 048
     Dates: start: 20030123, end: 20030126
  2. SEROQUEL [Suspect]
     Route: 048
     Dates: start: 20030127, end: 20030127
  3. SEROQUEL [Suspect]
     Route: 048
     Dates: start: 20030128, end: 20030129
  4. SEROQUEL [Suspect]
     Route: 048
     Dates: start: 20030131, end: 20030131
  5. SEROQUEL [Suspect]
     Route: 048
     Dates: start: 20030201, end: 20030202
  6. SEROQUEL [Suspect]
     Route: 048
     Dates: start: 20030203

REACTIONS (1)
  - SUBILEUS [None]
